FAERS Safety Report 5536990-3 (Version None)
Quarter: 2007Q4

REPORT INFORMATION
  Report Type: 
  Country: None (occurrence: None)
  Receive Date: 20071207
  Receipt Date: 20071204
  Transmission Date: 20080405
  Serious: Yes (Other)
  Sender: FDA-Public Use
  Company Number: US-JNJFOC-20071201351

PATIENT
  Age: 71 Year
  Sex: Female
  Weight: 86.18 kg

DRUGS (3)
  1. MYLANTA MAXIMUM STRENGTH ORIGINAL [Suspect]
     Indication: DYSPEPSIA
  2. HORMONES [Concomitant]
     Indication: MENOPAUSAL SYMPTOMS
  3. OXYBUTYNIN CHLORIDE [Concomitant]
     Indication: URINARY INCONTINENCE

REACTIONS (2)
  - OEDEMA MOUTH [None]
  - PHARYNGEAL OEDEMA [None]
